FAERS Safety Report 10910808 (Version 1)
Quarter: 2015Q1

REPORT INFORMATION
  Report Type: Spontaneous
  Country: US (occurrence: US)
  Receive Date: 20150312
  Receipt Date: 20150312
  Transmission Date: 20150721
  Serious: No
  Sender: FDA-Public Use
  Company Number: US-ABBVIE-14P-163-1291137-00

PATIENT
  Sex: Male
  Weight: 102.15 kg

DRUGS (17)
  1. DIVALPROEX SODIUM. [Suspect]
     Active Substance: DIVALPROEX SODIUM
     Indication: GAIT DISTURBANCE
  2. ASPIRIN. [Concomitant]
     Active Substance: ASPIRIN
     Indication: CARDIAC DISORDER
     Route: 065
  3. SYNTHROID [Concomitant]
     Active Substance: LEVOTHYROXINE SODIUM
     Indication: THYROIDECTOMY
     Route: 065
  4. CLINOPRIL [Concomitant]
     Indication: HYPERTENSION
     Route: 065
  5. CLONAZEPAN [Concomitant]
     Active Substance: CLONAZEPAM
     Indication: GAIT DISTURBANCE
  6. DEPAKOTE [Suspect]
     Active Substance: DIVALPROEX SODIUM
     Indication: DYSPHEMIA
     Route: 048
     Dates: start: 1999, end: 2005
  7. DEPAKOTE [Suspect]
     Active Substance: DIVALPROEX SODIUM
     Indication: GAIT DISTURBANCE
     Route: 048
     Dates: start: 2005
  8. CARVEDILOL. [Concomitant]
     Active Substance: CARVEDILOL
     Indication: HEART RATE
     Route: 065
  9. ACETAMINOPHEN W/HYDROCODONE [Concomitant]
     Active Substance: ACETAMINOPHEN\HYDROCODONE
     Indication: BACK PAIN
     Route: 065
  10. DIVALPROEX SODIUM. [Suspect]
     Active Substance: DIVALPROEX SODIUM
     Indication: DYSPHEMIA
     Dosage: 1 IN AM AND 2 IN PM
     Route: 048
     Dates: start: 2005, end: 2005
  11. PREDNISONE. [Concomitant]
     Active Substance: PREDNISONE
     Indication: SPINAL COLUMN STENOSIS
     Route: 065
  12. SPIRALACTONE [Concomitant]
     Indication: FLUID RETENTION
     Route: 065
  13. CLONAZEPAN [Concomitant]
     Active Substance: CLONAZEPAM
     Indication: DYSPHEMIA
     Route: 065
  14. SOTALOL. [Concomitant]
     Active Substance: SOTALOL
     Indication: PROPHYLAXIS
     Route: 065
  15. TORSEMIDE. [Concomitant]
     Active Substance: TORSEMIDE
     Indication: FLUID RETENTION
     Route: 065
  16. ACETAMINOPHEN AND CODEINE [Concomitant]
     Active Substance: ACETAMINOPHEN\CODEINE PHOSPHATE
     Indication: BACK PAIN
     Route: 065
  17. ALLOPURINOL. [Concomitant]
     Active Substance: ALLOPURINOL
     Indication: GOUT
     Route: 065

REACTIONS (2)
  - Off label use [Unknown]
  - Drug ineffective [Recovered/Resolved]

NARRATIVE: CASE EVENT DATE: 1999
